FAERS Safety Report 4958566-9 (Version None)
Quarter: 2006Q1

REPORT INFORMATION
  Report Type: 
  Country: None (occurrence: None)
  Receive Date: 20060201
  Receipt Date: 20051114
  Transmission Date: 20060701
  Serious: No
  Sender: FDA-Public Use
  Company Number: 2005PV005241

PATIENT
  Age: 59 Year
  Sex: Female
  Weight: 92.5338 kg

DRUGS (5)
  1. BYETTA [Suspect]
     Indication: DIABETES MELLITUS NON-INSULIN-DEPENDENT
     Dosage: 5 MG; BID; SC
     Route: 058
     Dates: start: 20051114
  2. GLYBURIDE [Concomitant]
  3. ATIVAN [Concomitant]
  4. LIBRAX [Concomitant]
  5. PLAQUENIL [Concomitant]

REACTIONS (3)
  - ABDOMINAL DISTENSION [None]
  - ABDOMINAL PAIN UPPER [None]
  - ANOREXIA [None]
